FAERS Safety Report 6603568-X (Version None)
Quarter: 2010Q1

REPORT INFORMATION
  Report Type: 
  Country: None (occurrence: None)
  Receive Date: 20100226
  Receipt Date: 20091014
  Transmission Date: 20100710
  Serious: No
  Sender: FDA-Public Use
  Company Number: A0811792A

PATIENT
  Age: 54 Year
  Sex: Female

DRUGS (6)
  1. VALTREX [Suspect]
     Indication: HERPES ZOSTER
     Dosage: 500MG PER DAY
     Route: 048
     Dates: start: 20050101
  2. METOPROLOL TARTRATE [Concomitant]
  3. VITAMINS [Concomitant]
  4. CHLOR-TRIMETON [Concomitant]
  5. ASPIRIN [Concomitant]
  6. BLOOD THINNER [Concomitant]

REACTIONS (5)
  - DRUG INEFFECTIVE [None]
  - FEELING ABNORMAL [None]
  - PAIN [None]
  - PARAESTHESIA [None]
  - TREMOR [None]
